FAERS Safety Report 13356034 (Version 2)
Quarter: 2018Q1

REPORT INFORMATION
  Report Type: Other
  Country: IT (occurrence: IT)
  Receive Date: 20170321
  Receipt Date: 20180212
  Transmission Date: 20180508
  Serious: Yes (Hospitalization, Other)
  Sender: FDA-Public Use
  Company Number: IT-TAKEDA-2017TEU001154

PATIENT
  Age: 50 Year
  Sex: Male

DRUGS (1)
  1. INCRESYNC 12.5MG/30MG [Suspect]
     Active Substance: ALOGLIPTIN BENZOATE\PIOGLITAZONE HYDROCHLORIDE
     Indication: DIABETES MELLITUS
     Dosage: 12.5/30 MG, QD
     Route: 048
     Dates: start: 20131201, end: 20170307

REACTIONS (5)
  - Abdominal pain upper [Recovered/Resolved]
  - Hyperglycaemia [Recovered/Resolved]
  - Amylase increased [Recovered/Resolved]
  - Pancreatitis acute [Recovered/Resolved]
  - Hyperhidrosis [Recovered/Resolved]

NARRATIVE: CASE EVENT DATE: 20170307
